FAERS Safety Report 6329366-2 (Version None)
Quarter: 2009Q3

REPORT INFORMATION
  Report Type: 
  Country: None (occurrence: None)
  Receive Date: 20090826
  Receipt Date: 20090819
  Transmission Date: 20100115
  Serious: Yes (Hospitalization)
  Sender: FDA-Public Use
  Company Number: US-AVENTIS-200917401US

PATIENT
  Sex: Male

DRUGS (2)
  1. APIDRA [Suspect]
     Route: 058
     Dates: start: 20081203
  2. NOVOLOG [Concomitant]
     Dosage: DOSE: UNK
     Dates: end: 20081203

REACTIONS (1)
  - HOSPITALISATION [None]
